FAERS Safety Report 12399943 (Version 4)
Quarter: 2016Q3

REPORT INFORMATION
  Report Type: Spontaneous
  Country: JP (occurrence: JP)
  Receive Date: 20160524
  Receipt Date: 20160728
  Transmission Date: 20161109
  Serious: Yes (Other)
  Sender: FDA-Public Use
  Company Number: JP-PFIZER INC-2016200327

PATIENT
  Age: 48 Year
  Sex: Male

DRUGS (4)
  1. LEXAPRO [Concomitant]
     Active Substance: ESCITALOPRAM OXALATE
     Indication: ANTIDEPRESSANT THERAPY
     Dosage: 10 MG, DAILY
     Route: 048
  2. EFFEXOR [Suspect]
     Active Substance: VENLAFAXINE HYDROCHLORIDE
     Indication: DEPRESSION
     Dosage: 37.5 MG, 1X/DAY
     Route: 048
     Dates: start: 20160325, end: 20160328
  3. HALRACK [Concomitant]
     Active Substance: TRIAZOLAM
     Indication: SEDATIVE THERAPY
     Dosage: 0.25 MG, DAILY
     Route: 048
  4. BROTIZOLAM [Concomitant]
     Active Substance: BROTIZOLAM
     Indication: SEDATIVE THERAPY
     Dosage: 0.25 MG, DAILY
     Route: 048

REACTIONS (3)
  - Suicidal ideation [Recovered/Resolved]
  - Aggression [Recovered/Resolved]
  - Activation syndrome [Recovered/Resolved]

NARRATIVE: CASE EVENT DATE: 201603
